FAERS Safety Report 5193911-3 (Version None)
Quarter: 2006Q4

REPORT INFORMATION
  Report Type: 
  Country: None (occurrence: None)
  Receive Date: 20061222
  Receipt Date: 20061212
  Transmission Date: 20070319
  Serious: Yes (Other)
  Sender: FDA-Public Use
  Company Number: 2006138697

PATIENT
  Age: 59 Year
  Sex: Male

DRUGS (9)
  1. LIPITOR [Suspect]
     Indication: BLOOD CHOLESTEROL
     Dosage: 40 MG (40 MG, 1 IN 1 D), ORAL
     Route: 048
     Dates: start: 20060817
  2. LIPITOR [Suspect]
     Indication: BLOOD CHOLESTEROL INCREASED
     Dosage: 40 MG (40 MG, 1 IN 1 D), ORAL
     Route: 048
     Dates: start: 20060817
  3. LIPITOR [Suspect]
     Indication: BLOOD TRIGLYCERIDES
     Dosage: 40 MG (40 MG, 1 IN 1 D), ORAL
     Route: 048
     Dates: start: 20060817
  4. GEMFIBROZIL [Suspect]
     Indication: BLOOD TRIGLYCERIDES
     Dosage: 1200 MG (600 MG, 1 IN 2 D), ORAL
     Route: 048
     Dates: start: 20060817
  5. ATENOLOL [Suspect]
  6. STATINS (HMG COA REDUCTASE INHIBITORS) [Suspect]
     Indication: HYPERLIPIDAEMIA
  7. LISINOPRIL [Concomitant]
  8. NORVASC [Concomitant]
  9. ASPIRIN [Concomitant]

REACTIONS (5)
  - BLOOD CHOLESTEROL INCREASED [None]
  - BLOOD TRIGLYCERIDES INCREASED [None]
  - DRUG RESISTANCE [None]
  - THERAPY NON-RESPONDER [None]
  - TREATMENT NONCOMPLIANCE [None]
